FAERS Safety Report 6825659-0 (Version None)
Quarter: 2010Q3

REPORT INFORMATION
  Report Type: 
  Country: None (occurrence: None)
  Receive Date: 20100709
  Receipt Date: 20100701
  Transmission Date: 20110219
  Serious: Yes (Hospitalization)
  Sender: FDA-Public Use
  Company Number: US-BIOGENIDEC-2010BI014574

PATIENT
  Age: 61 Year
  Sex: Female

DRUGS (2)
  1. AVONEX [Suspect]
     Indication: MULTIPLE SCLEROSIS
     Route: 030
     Dates: start: 20091126
  2. AVONEX [Suspect]
     Route: 030

REACTIONS (4)
  - BACK PAIN [None]
  - CONSTIPATION [None]
  - MULTIPLE SCLEROSIS RELAPSE [None]
  - PSYCHOTIC DISORDER [None]
